FAERS Safety Report 10444225 (Version 1)
Quarter: 2014Q3

REPORT INFORMATION
  Report Type: Spontaneous
  Country: DE (occurrence: DE)
  Receive Date: 20140910
  Receipt Date: 20140910
  Transmission Date: 20150326
  Serious: Yes (Other)
  Sender: FDA-Public Use
  Company Number: DE-DRREDDYS-GER/GER/14/0042928

PATIENT
  Age: 32 Year
  Sex: Female
  Weight: 81.9 kg

DRUGS (9)
  1. METOPROLOL [Suspect]
     Active Substance: METOPROLOL
     Indication: HYPERTENSION
     Route: 048
     Dates: start: 20121206, end: 20130601
  2. FOLIO [Concomitant]
     Active Substance: FOLIC ACID
     Indication: PROPHYLAXIS OF NEURAL TUBE DEFECT
     Route: 048
     Dates: start: 20121206, end: 20130314
  3. LEVOTHYROXINE SODIUM. [Concomitant]
     Active Substance: LEVOTHYROXINE SODIUM
     Indication: HYPOTHYROIDISM
     Route: 048
     Dates: start: 20121206, end: 20130619
  4. NEPRESOL [Concomitant]
     Active Substance: DIHYDRALAZINE SULFATE
     Indication: HYPERTENSION
     Route: 048
  5. NOVORAPID [Concomitant]
     Active Substance: INSULIN ASPART
     Indication: TYPE 1 DIABETES MELLITUS
     Route: 058
     Dates: start: 20121206, end: 20130619
  6. VALSARTAN. [Suspect]
     Active Substance: VALSARTAN
     Indication: HYPERTENSION
     Route: 048
     Dates: start: 20121206, end: 20130311
  7. METHYLDOPA. [Concomitant]
     Active Substance: METHYLDOPA
     Indication: HYPERTENSION
     Route: 048
     Dates: start: 20130312, end: 20130619
  8. HYDROCHLOROTHIAZIDE. [Suspect]
     Active Substance: HYDROCHLOROTHIAZIDE
     Indication: HYPERTENSION
     Route: 048
     Dates: start: 20121206, end: 20130314
  9. DIAZEPAM. [Concomitant]
     Active Substance: DIAZEPAM
     Indication: ACUTE STRESS DISORDER
     Dosage: AFTER THE DEATH OF HER MOTHER, IF REQUIRED.
     Route: 048

REACTIONS (4)
  - Nephrotic syndrome [Unknown]
  - Caesarean section [Unknown]
  - Exposure during pregnancy [Unknown]
  - Pre-eclampsia [Unknown]
